FAERS Safety Report 9289281 (Version 2)
Quarter: 2013Q2

REPORT INFORMATION
  Report Type: Spontaneous
  Country: US (occurrence: US)
  Receive Date: 20130514
  Receipt Date: 20130527
  Transmission Date: 20140414
  Serious: No
  Sender: FDA-Public Use
  Company Number: US-009507513-1305USA002919

PATIENT
  Sex: Female

DRUGS (4)
  1. AZASITE [Suspect]
     Indication: EYE INJURY
     Dosage: ONE DROP INTO THE AFFECTED EYE, EACH DAY
     Route: 047
  2. AZASITE [Suspect]
     Indication: BLEPHARITIS
     Dosage: UNK
     Route: 047
     Dates: start: 201304, end: 2013
  3. DOXYCYCLINE [Concomitant]
  4. SYNTHROID [Concomitant]

REACTIONS (5)
  - Eye burns [Recovered/Resolved]
  - Dyspnoea [Recovered/Resolved]
  - Drug dose omission [Unknown]
  - Product container issue [Unknown]
  - Wrong technique in drug usage process [Unknown]
